FAERS Safety Report 16781831 (Version 1)
Quarter: 2019Q3

REPORT INFORMATION
  Report Type: Spontaneous
  Country: US (occurrence: US)
  Receive Date: 20190906
  Receipt Date: 20190906
  Transmission Date: 20191005
  Serious: Yes (Disabling)
  Sender: FDA-Public Use
  Company Number: US-ASTRAZENECA-2019SF25031

PATIENT
  Sex: Male
  Weight: 65.8 kg

DRUGS (4)
  1. OMEPRAZOLE. [Suspect]
     Active Substance: OMEPRAZOLE
     Route: 048
  2. OMEPRAZOLE. [Suspect]
     Active Substance: OMEPRAZOLE
     Route: 048
     Dates: start: 1997
  3. OMEPRAZOLE. [Suspect]
     Active Substance: OMEPRAZOLE
     Route: 048
  4. GABAPENTIN. [Suspect]
     Active Substance: GABAPENTIN
     Indication: NEURALGIA
     Dosage: 100MG 3 PILLS UP TO 9 A DAY , ONLY GOT UP TO 6 PILLS A DAY
     Route: 065
     Dates: start: 2014, end: 2015

REACTIONS (21)
  - Epistaxis [Unknown]
  - Abnormal loss of weight [Unknown]
  - Neck injury [Unknown]
  - Post-traumatic stress disorder [Unknown]
  - Malaise [Unknown]
  - Dyslexia [Unknown]
  - Intervertebral disc protrusion [Unknown]
  - Fall [Unknown]
  - Limb injury [Unknown]
  - Spinal stenosis [Unknown]
  - Condition aggravated [Unknown]
  - Electric shock [Unknown]
  - Abdominal pain upper [Unknown]
  - Constipation [Unknown]
  - Attention deficit/hyperactivity disorder [Unknown]
  - Dyschezia [Unknown]
  - Hypophagia [Unknown]
  - Frustration tolerance decreased [Unknown]
  - Musculoskeletal pain [Unknown]
  - Intervertebral disc disorder [Unknown]
  - Headache [Unknown]

NARRATIVE: CASE EVENT DATE: 1998
